FAERS Safety Report 5682521-7 (Version None)
Quarter: 2008Q1

REPORT INFORMATION
  Report Type: 
  Country: None (occurrence: None)
  Receive Date: 20080327
  Receipt Date: 20080117
  Transmission Date: 20080703
  Serious: Yes (Other)
  Sender: FDA-Public Use
  Company Number: US-BRISTOL-MYERS SQUIBB COMPANY-14008536

PATIENT
  Age: 44 Year
  Sex: Male
  Weight: 76 kg

DRUGS (1)
  1. SPRYCEL [Suspect]
     Indication: CHRONIC MYELOID LEUKAEMIA
     Dosage: CHANGED TO ONCE DAILY
     Route: 048
     Dates: start: 20070124, end: 20071206

REACTIONS (4)
  - FATIGUE [None]
  - PLEURAL EFFUSION [None]
  - PULMONARY MASS [None]
  - SLEEP DISORDER [None]
